FAERS Safety Report 9733342 (Version 2)
Quarter: 2013Q4

REPORT INFORMATION
  Report Type: Spontaneous
  Country: US (occurrence: US)
  Receive Date: 20131204
  Receipt Date: 20131204
  Transmission Date: 20140711
  Serious: Yes (Other)
  Sender: FDA-Public Use
  Company Number: US-ROCHE-GNE257417

PATIENT
  Age: 31 Year
  Sex: Female
  Weight: 94.43 kg

DRUGS (26)
  1. XOLAIR [Suspect]
     Indication: ASTHMA
     Dosage: 375 MG, Q2W
     Route: 058
     Dates: start: 20060201, end: 20080212
  2. ADVAIR [Concomitant]
     Indication: ASTHMA
     Dosage: UNK
     Route: 065
  3. NASONEX [Concomitant]
     Indication: HYPERSENSITIVITY
     Dosage: UNK
     Route: 065
  4. XOPENEX HFA [Concomitant]
     Indication: ASTHMA
     Dosage: 1.25 UNK, PRN
     Route: 065
  5. FORMOTEROL FUMARATE [Concomitant]
     Indication: PRODUCT USED FOR UNKNOWN INDICATION
  6. SPIRIVA [Concomitant]
     Indication: PRODUCT USED FOR UNKNOWN INDICATION
  7. AVAPRO [Concomitant]
     Indication: HYPERTENSION
     Dosage: UNK
     Route: 048
  8. BENTYL [Concomitant]
     Indication: IRRITABLE BOWEL SYNDROME
     Dosage: UNK
     Route: 048
  9. THEOPHYLLINE [Concomitant]
     Indication: PRODUCT USED FOR UNKNOWN INDICATION
  10. PREDNISONE [Concomitant]
     Indication: PRODUCT USED FOR UNKNOWN INDICATION
     Dosage: UNK
     Route: 065
  11. PULMICORT [Concomitant]
     Indication: ASTHMA
     Dosage: 1 MG, BID
     Route: 065
  12. VERAPAMIL [Concomitant]
     Indication: HYPERTENSION
     Dosage: UNK
     Route: 048
  13. ACTOS [Concomitant]
     Indication: PRODUCT USED FOR UNKNOWN INDICATION
  14. TRAMADOL [Concomitant]
     Indication: PAIN
     Dosage: 50 MG, PRN
     Route: 048
  15. METFORMIN [Concomitant]
     Indication: PRODUCT USED FOR UNKNOWN INDICATION
  16. SINGULAIR [Concomitant]
     Indication: ASTHMA
     Dosage: 10 MG, QAM
     Route: 048
  17. SINGULAIR [Concomitant]
     Indication: HYPERSENSITIVITY
  18. NEXIUM [Concomitant]
     Indication: GASTROOESOPHAGEAL REFLUX DISEASE
     Dosage: 20 MG, UNK
     Route: 048
  19. ZOFRAN [Concomitant]
     Indication: GASTROOESOPHAGEAL REFLUX DISEASE
     Dosage: UNK
     Route: 048
  20. TERAZOSIN [Concomitant]
     Indication: HYPERTENSION
     Dosage: 1 MG, UNK
     Route: 048
  21. HYDROCHLOROTHIAZIDE [Concomitant]
     Indication: HYPERTENSION
     Dosage: UNK
     Route: 048
  22. ZYRTEC [Concomitant]
     Indication: HYPERSENSITIVITY
     Dosage: 10 MG, QAM
     Route: 048
  23. GLICLAZIDE/METFORMIN HYDROCHLORIDE [Concomitant]
     Indication: DIABETES MELLITUS
     Dosage: 30 MG, BID
     Route: 048
  24. CETIRIZINE [Concomitant]
     Indication: HYPERSENSITIVITY
     Dosage: 10 MG, QD
     Route: 048
  25. ASTEPRO [Concomitant]
     Indication: RHINITIS ALLERGIC
     Dosage: 1 PUFF, QD, DOSE=1 PUFF, DAILY DOSE=1 PUFF
     Route: 045
  26. PROVENTIL [Concomitant]
     Indication: ASTHMA
     Dosage: 2 PUFF, PRN, DOSE=2 PUFF
     Route: 065

REACTIONS (3)
  - Dyspnoea [Recovering/Resolving]
  - Pruritus [Unknown]
  - Epistaxis [Unknown]
